FAERS Safety Report 9176547 (Version 2)
Quarter: 2013Q1

REPORT INFORMATION
  Report Type: Spontaneous
  Country: DE (occurrence: None)
  Receive Date: 20130319
  Receipt Date: 20130329
  Transmission Date: 20140127
  Serious: Yes (Hospitalization)
  Sender: FDA-Public Use
  Company Number: ENT 2013-0051

PATIENT
  Sex: Female

DRUGS (1)
  1. COMTESS [Suspect]
     Indication: PARKINSON^S DISEASE
     Dosage: 800 MG (200 MG, 4 IN 1 D) - - STOPPED
     Route: 048

REACTIONS (2)
  - Nausea [None]
  - Retching [None]
